FAERS Safety Report 5683859-X (Version None)
Quarter: 2008Q1

REPORT INFORMATION
  Report Type: 
  Country: None (occurrence: None)
  Receive Date: 20080328
  Receipt Date: 20080318
  Transmission Date: 20080703
  Serious: Yes (Other)
  Sender: FDA-Public Use
  Company Number: US-JNJFOC-20080305214

PATIENT
  Sex: Female
  Weight: 86.18 kg

DRUGS (2)
  1. IBUPROFEN TABLETS [Suspect]
     Indication: FIBROMYALGIA
     Route: 048
  2. METHADON HCL TAB [Concomitant]

REACTIONS (3)
  - ASTHENIA [None]
  - FIBROMYALGIA [None]
  - PNEUMONIA [None]
